FAERS Safety Report 9976057 (Version 1)
Quarter: 2014Q1

REPORT INFORMATION
  Report Type: Spontaneous
  Country: BR (occurrence: BR)
  Receive Date: 20140306
  Receipt Date: 20140306
  Transmission Date: 20141002
  Serious: Yes (Hospitalization)
  Sender: FDA-Public Use
  Company Number: PHHY2014BR025959

PATIENT
  Age: 30 Year
  Sex: Female

DRUGS (6)
  1. FENTANYL [Suspect]
     Indication: GENERAL ANAESTHESIA
     Dosage: 100 UG, UNK
     Route: 008
  2. LIDOCAINE [Suspect]
     Indication: GENERAL ANAESTHESIA
     Dosage: 10 ML, UNK
     Route: 008
  3. LIDOCAINE [Suspect]
     Dosage: 10 ML, UNK
     Route: 008
  4. CEFAZOLIN [Concomitant]
     Dosage: 2 G, UNK
  5. DIMENHYDRINATE [Concomitant]
     Dosage: 30 MG, UNK
  6. TENOXICAM [Concomitant]
     Dosage: 40 MG, UNK

REACTIONS (2)
  - Parotitis [Recovered/Resolved]
  - Parotid gland enlargement [Recovered/Resolved]
